FAERS Safety Report 16336763 (Version 1)
Quarter: 2019Q2

REPORT INFORMATION
  Report Type: Spontaneous
  Country: US (occurrence: US)
  Receive Date: 20190520
  Receipt Date: 20190520
  Transmission Date: 20190711
  Serious: Yes (Disabling, Other)
  Sender: FDA-Public Use
  Company Number: None

PATIENT
  Age: 57 Year
  Sex: Female
  Weight: 67.5 kg

DRUGS (1)
  1. LEVOFLOXACIN. [Suspect]
     Active Substance: LEVOFLOXACIN
     Indication: SINUSITIS
     Dosage: ?          QUANTITY:1 TABLET(S);?
     Route: 048
     Dates: start: 20140102, end: 20190512

REACTIONS (13)
  - Vision blurred [None]
  - Tinnitus [None]
  - Insomnia [None]
  - Musculoskeletal pain [None]
  - Deafness [None]
  - Parosmia [None]
  - Madarosis [None]
  - Rash [None]
  - Alopecia [None]
  - Nausea [None]
  - Balance disorder [None]
  - Cognitive disorder [None]
  - Joint effusion [None]

NARRATIVE: CASE EVENT DATE: 20140114
